FAERS Safety Report 23247826 (Version 2)
Quarter: 2023Q4

REPORT INFORMATION
  Report Type: Spontaneous
  Country: BE (occurrence: BE)
  Receive Date: 20231130
  Receipt Date: 20231206
  Transmission Date: 20240109
  Serious: Yes (Disabling, Other)
  Sender: FDA-Public Use
  Company Number: BE-JNJFOC-20231121141

PATIENT
  Sex: Female
  Weight: 79 kg

DRUGS (3)
  1. IMBRUVICA [Suspect]
     Active Substance: IBRUTINIB
     Indication: Chronic lymphocytic leukaemia
     Route: 048
     Dates: start: 20171001
  2. METFORMIN HYDROCHLORIDE [Concomitant]
     Active Substance: METFORMIN HYDROCHLORIDE
     Indication: Type 2 diabetes mellitus
     Dates: start: 20230701
  3. ACYCLOVIR [Concomitant]
     Active Substance: ACYCLOVIR
     Indication: Oral herpes

REACTIONS (7)
  - Lichen planus [Unknown]
  - Chest discomfort [Unknown]
  - Vulvovaginal dryness [Unknown]
  - Epistaxis [Unknown]
  - Ecchymosis [Unknown]
  - Diabetes mellitus [Unknown]
  - Hypertension [Unknown]

NARRATIVE: CASE EVENT DATE: 20190101
